FAERS Safety Report 9553596 (Version 1)
Quarter: 2013Q3

REPORT INFORMATION
  Report Type: Spontaneous
  Country: US (occurrence: None)
  Receive Date: 20130916
  Receipt Date: 20130916
  Transmission Date: 20140515
  Serious: Yes (Other)
  Sender: FDA-Public Use
  Company Number: JPI-P-020412

PATIENT
  Age: 13 Year
  Sex: Female
  Weight: 58.97 kg

DRUGS (1)
  1. XYREM [Suspect]
     Indication: CATAPLEXY
     Dosage: 4.5 GM (2.25 GM, 2 IN 1 D), ORAL
     Dates: start: 20120313

REACTIONS (13)
  - Weight decreased [None]
  - Tonsillolith [None]
  - Ear pain [None]
  - Facial pain [None]
  - Neck pain [None]
  - Amenorrhoea [None]
  - Vomiting [None]
  - Nausea [None]
  - Gastrooesophageal reflux disease [None]
  - Oropharyngeal pain [None]
  - Dysphagia [None]
  - Oropharyngeal pain [None]
  - Paraesthesia [None]
